FAERS Safety Report 15590183 (Version 2)
Quarter: 2020Q3

REPORT INFORMATION
  Report Type: Report from Study
  Country: US (occurrence: US)
  Receive Date: 20181106
  Receipt Date: 20200921
  Transmission Date: 20201105
  Serious: Yes (Hospitalization, Other)
  Sender: FDA-Public Use
  Company Number: US-GLAXOSMITHKLINE-US2018167951

PATIENT
  Age: 63 Year
  Sex: Male
  Weight: 80.7 kg

DRUGS (2)
  1. ALBUTEROL. [Suspect]
     Active Substance: ALBUTEROL
     Indication: BRONCHOSPASM
     Dosage: UNK
     Route: 055
     Dates: start: 20180909, end: 20180909
  2. GSK?2330811. [Suspect]
     Active Substance: GSK-2330811
     Indication: SYSTEMIC SCLERODERMA
     Dosage: UNK
     Dates: start: 20180627

REACTIONS (3)
  - Hypotension [Recovered/Resolved]
  - Atrial fibrillation [Recovered/Resolved with Sequelae]
  - Pericarditis [Recovered/Resolved with Sequelae]

NARRATIVE: CASE EVENT DATE: 20180909
